FAERS Safety Report 8207471-3 (Version None)
Quarter: 2012Q1

REPORT INFORMATION
  Report Type: 
  Country: None (occurrence: None)
  Receive Date: 20120314
  Receipt Date: 20120308
  Transmission Date: 20120608
  Serious: Yes (Death)
  Sender: FDA-Public Use
  Company Number: US-ASTELLAS-2012US002675

PATIENT
  Sex: Male

DRUGS (4)
  1. XELODA [Suspect]
     Indication: METASTASES TO BONE MARROW
  2. XELODA [Suspect]
     Indication: BONE NEOPLASM MALIGNANT
     Dosage: 500 MG, UID/QD
     Route: 065
  3. TARCEVA [Suspect]
     Indication: PRODUCT USED FOR UNKNOWN INDICATION
     Dosage: 150 MG, UID/QD
     Route: 048
  4. XELODA [Suspect]
     Indication: NEOPLASM MALIGNANT

REACTIONS (1)
  - DEATH [None]
